FAERS Safety Report 15151560 (Version 5)
Quarter: 2019Q1

REPORT INFORMATION
  Report Type: Report from Study
  Country: US (occurrence: US)
  Receive Date: 20180716
  Receipt Date: 20190215
  Transmission Date: 20190417
  Serious: Yes (Hospitalization, Other)
  Sender: FDA-Public Use
  Company Number: US-SAKK-2018SA182012AA

PATIENT
  Age: 51 Year
  Sex: Female

DRUGS (2)
  1. ALEMTUZUMAB [Suspect]
     Active Substance: ALEMTUZUMAB
     Indication: MULTIPLE SCLEROSIS
     Dosage: 12 MG, QD
     Route: 041
     Dates: start: 20170731, end: 20170804
  2. ALEMTUZUMAB [Suspect]
     Active Substance: ALEMTUZUMAB
     Dosage: 12 MG, QD
     Route: 041
     Dates: start: 20180806, end: 20180808

REACTIONS (15)
  - Haemolytic anaemia [Recovered/Resolved]
  - Blood urine [Recovered/Resolved]
  - Red blood cell count decreased [Recovered/Resolved]
  - Bacterial vaginosis [Recovered/Resolved]
  - Platelet count decreased [Recovered/Resolved]
  - Platelet count abnormal [Unknown]
  - Pseudomonas infection [Recovered/Resolved]
  - Tinea cruris [Unknown]
  - White blood cell count decreased [Recovered/Resolved]
  - White blood cell count abnormal [Unknown]
  - Blood count abnormal [Recovered/Resolved]
  - Lymphocyte count abnormal [Not Recovered/Not Resolved]
  - Pyrexia [Recovered/Resolved]
  - Haemoglobin abnormal [Unknown]
  - Autoimmune disorder [Unknown]

NARRATIVE: CASE EVENT DATE: 201709
